FAERS Safety Report 15533509 (Version 1)
Quarter: 2018Q4

REPORT INFORMATION
  Report Type: Report from Study
  Country: EG (occurrence: EG)
  Receive Date: 20181019
  Receipt Date: 20181019
  Transmission Date: 20190205
  Serious: Yes (Death)
  Sender: FDA-Public Use
  Company Number: EG-PFIZER INC-2018424408

PATIENT

DRUGS (2)
  1. GEMCITABINE HYDROCHLORIDE. [Suspect]
     Active Substance: GEMCITABINE HYDROCHLORIDE
     Indication: HODGKIN^S DISEASE
     Dosage: UNK, CYCLIC (CYCLES RANGED FROM 1 TO 6 WITH A MEAN OF 3)
  2. VINORELBINE [Suspect]
     Active Substance: VINORELBINE\VINORELBINE TARTRATE
     Indication: HODGKIN^S DISEASE
     Dosage: UNK, CYCLIC (CYCLES RANGED FROM 1 TO 6 WITH A MEAN OF 3)

REACTIONS (1)
  - Toxicity to various agents [Fatal]
